FAERS Safety Report 5789074-3 (Version None)
Quarter: 2008Q2

REPORT INFORMATION
  Report Type: 
  Country: None (occurrence: None)
  Receive Date: 20080626
  Receipt Date: 20071120
  Transmission Date: 20081010
  Serious: No
  Sender: FDA-Public Use
  Company Number: US-ASTRAZENECA-2007UW26749

PATIENT
  Age: 72 Year
  Sex: Female
  Weight: 64.9 kg

DRUGS (3)
  1. PULMICORT RESPULES [Suspect]
     Indication: EMPHYSEMA
     Route: 055
     Dates: start: 20070501
  2. IBUROFEN [Concomitant]
  3. PREDNISONE [Concomitant]

REACTIONS (1)
  - INSOMNIA [None]
